FAERS Safety Report 24122413 (Version 1)
Quarter: 2024Q3

REPORT INFORMATION
  Report Type: Report from Study
  Country: GB (occurrence: GB)
  Receive Date: 20240723
  Receipt Date: 20240723
  Transmission Date: 20241017
  Serious: Yes (Other)
  Sender: ABBVIE
  Company Number: GB-ABBVIE-5846265

PATIENT
  Age: 25 Year
  Sex: Female

DRUGS (1)
  1. RINVOQ [Suspect]
     Active Substance: UPADACITINIB
     Indication: Crohn^s disease
     Dosage: FORM STRENGTH: 45 MG
     Route: 048

REACTIONS (5)
  - Crohn^s disease [Unknown]
  - Volvulus [Unknown]
  - Drug ineffective [Unknown]
  - Malabsorption [Unknown]
  - Ileostomy [Unknown]

NARRATIVE: CASE EVENT DATE: 20240101
